FAERS Safety Report 9093432 (Version 1)
Quarter: 2013Q1

REPORT INFORMATION
  Report Type: Spontaneous
  Country: US (occurrence: US)
  Receive Date: 20130218
  Receipt Date: 20130218
  Transmission Date: 20140127
  Serious: Yes (Hospitalization, Disabling, Other)
  Sender: FDA-Public Use
  Company Number: US-009507513-1107USA03277

PATIENT
  Sex: Female
  Weight: 73.94 kg

DRUGS (8)
  1. FOSAMAX [Suspect]
     Indication: OSTEOPOROSIS
     Dosage: 5 MG, UNK
     Route: 048
     Dates: start: 19981109, end: 20040309
  2. FOSAMAX [Suspect]
     Indication: OSTEOPOROSIS PROPHYLAXIS
     Dosage: 70 MG, QW
     Route: 048
     Dates: start: 20050509
  3. FOSAMAX [Suspect]
     Dosage: 40 MG, UNK
     Route: 048
     Dates: start: 20051130
  4. FOSAMAX [Suspect]
     Dosage: 35 MG, UNK
     Route: 048
     Dates: start: 20051202, end: 20051231
  5. FOSAMAX [Suspect]
     Indication: OSTEOPOROSIS
     Dosage: 70 MG, QW
     Route: 048
     Dates: start: 20080304, end: 20091109
  6. FOSAMAX [Suspect]
     Indication: OSTEOPOROSIS PROPHYLAXIS
     Dosage: 70 MG, UNK
     Route: 048
     Dates: start: 200903, end: 201001
  7. CALCIUM (UNSPECIFIED) [Concomitant]
     Dosage: 1500 MG, QD
     Route: 048
     Dates: start: 1995
  8. VITAMIN D (UNSPECIFIED) [Concomitant]
     Dosage: 600-800
     Route: 048
     Dates: start: 1995

REACTIONS (52)
  - Femur fracture [Recovered/Resolved]
  - Open reduction of fracture [Unknown]
  - Low turnover osteopathy [Not Recovered/Not Resolved]
  - Femur fracture [Not Recovered/Not Resolved]
  - Fracture nonunion [Recovering/Resolving]
  - Gastrooesophageal reflux disease [Unknown]
  - Bone disorder [Unknown]
  - Arthritis [Unknown]
  - Hyperlipidaemia [Unknown]
  - Lymphoedema [Recovered/Resolved]
  - Bursitis [Unknown]
  - Cellulitis [Unknown]
  - Sinusitis [Recovered/Resolved]
  - Rhinitis [Recovered/Resolved]
  - Hypertension [Unknown]
  - Epicondylitis [Unknown]
  - Chest wall cyst [Unknown]
  - Avulsion fracture [Unknown]
  - Ligament sprain [Unknown]
  - Erythema [Unknown]
  - Osteoarthritis [Unknown]
  - Arthralgia [Unknown]
  - Dyspepsia [Unknown]
  - Helicobacter infection [Unknown]
  - Drug intolerance [Unknown]
  - Neuropathy peripheral [Unknown]
  - Seasonal allergy [Unknown]
  - Restless legs syndrome [Unknown]
  - Rhinitis [Unknown]
  - Sinusitis [Unknown]
  - Herpes zoster [Unknown]
  - Fatigue [Unknown]
  - Sleep apnoea syndrome [Unknown]
  - Nasal septum deviation [Unknown]
  - Thyroid neoplasm [Unknown]
  - Fall [Unknown]
  - Osteoarthritis [Unknown]
  - Chest pain [Unknown]
  - Hypertension [Unknown]
  - Fracture nonunion [Unknown]
  - Cellulitis [Recovering/Resolving]
  - Fall [Unknown]
  - Cellulitis [Unknown]
  - Pruritus [Unknown]
  - Adverse drug reaction [Unknown]
  - Pain in extremity [Recovering/Resolving]
  - Synovial cyst [Unknown]
  - Anaemia [Unknown]
  - Hypoglycaemia [Unknown]
  - Immunodeficiency [Unknown]
  - Pulmonary mass [Unknown]
  - Removal of internal fixation [Unknown]
